FAERS Safety Report 4595673-7 (Version None)
Quarter: 2005Q1

REPORT INFORMATION
  Report Type: 
  Country: None (occurrence: None)
  Receive Date: 20050224
  Receipt Date: 20050216
  Transmission Date: 20050727
  Serious: Yes (Life-Threatening)
  Sender: FDA-Public Use
  Company Number: 2005031530

PATIENT
  Age: 70 Year
  Sex: Female
  Weight: 62 kg

DRUGS (17)
  1. TAHOR (ATORVASTATIN) [Suspect]
     Indication: ILL-DEFINED DISORDER
     Dosage: 10 MG, ORAL
     Route: 048
     Dates: end: 20050117
  2. AMLODIPINE [Suspect]
     Indication: ILL-DEFINED DISORDER
  3. XALATAN [Suspect]
     Indication: ILL-DEFINED DISORDER
  4. BISOPROLOL FUMARATE [Suspect]
     Indication: ILL-DEFINED DISORDER
     Dosage: 10 MG (10 MG,  1 IN 1 D), ORAL
     Route: 048
  5. FLUINDIONE (FLUINDIONE) [Suspect]
     Indication: ILL-DEFINED DISORDER
     Dosage: 20 MG (20 MG, 1 IN 1 D), ORAL
     Route: 048
     Dates: start: 19970615, end: 20050117
  6. ZYRTEC [Suspect]
     Indication: ILL-DEFINED DISORDER
     Dosage: 10 MG (10 M, 1 IN 1 D), ORAL
     Route: 048
     Dates: start: 20020615, end: 20050117
  7. APOREX (DEXTROPROPOXYPHENE HYDROCHLORIDE, PARACETAMOL) [Concomitant]
  8. HYDROXYZINE HCL [Concomitant]
  9. SPIRONOLACTONE [Concomitant]
  10. CLONAZEPAM [Concomitant]
  11. BETAHISTINE HYDROCHLORIDE (BETAHISTINE HYDROCHLORIDE) [Concomitant]
  12. POLERY (ACONITE TINCTURE, BELLADONA TINCTURE, CODEINE, ETHYLMORPHINE, [Concomitant]
  13. NICORANDIL (NICORANDIL) [Concomitant]
  14. DIOSMIN (DIOSMIN) [Concomitant]
  15. MEBEVERNE (MEBEVERINE) [Concomitant]
  16. BALSAMORHINOL (AURANTIIN, BERGAMOT OIL, EPHEDRINE, LEVOMENOL) [Concomitant]
  17. POLYVIDONE (POLYVIDONE) [Concomitant]

REACTIONS (1)
  - PANCYTOPENIA [None]
